FAERS Safety Report 9861236 (Version 2)
Quarter: 2014Q1

REPORT INFORMATION
  Report Type: Spontaneous
  Country: US (occurrence: US)
  Receive Date: 20140202
  Receipt Date: 20140202
  Transmission Date: 20141002
  Serious: No
  Sender: FDA-Public Use
  Company Number: US-ALLERGAN-1304304US

PATIENT
  Sex: Female

DRUGS (2)
  1. BOTOX COSMETIC [Suspect]
     Indication: SKIN WRINKLING
     Dosage: 15 UNITS, SINGLE
     Route: 030
     Dates: start: 201303, end: 201303
  2. KLONOPIN [Concomitant]
     Indication: ANXIETY
     Dosage: 1 MG, BID
     Route: 048

REACTIONS (5)
  - Wrong technique in drug usage process [Unknown]
  - Injection site swelling [Not Recovered/Not Resolved]
  - Injection site oedema [Not Recovered/Not Resolved]
  - Eyelid oedema [Unknown]
  - Headache [Unknown]
